FAERS Safety Report 4650693-9 (Version None)
Quarter: 2005Q2

REPORT INFORMATION
  Report Type: 
  Country: None (occurrence: None)
  Receive Date: 20050429
  Receipt Date: 20050429
  Transmission Date: 20051028
  Serious: Yes (Hospitalization)
  Sender: FDA-Public Use
  Company Number: None

PATIENT
  Age: 71 Year
  Sex: Female
  Weight: 50.8029 kg

DRUGS (2)
  1. TAXOTERE [Suspect]
     Indication: PANCREATIC CARCINOMA
     Dosage: 35MG/M2
     Dates: start: 20050310, end: 20050414
  2. AVASTIN [Suspect]
     Indication: PANCREATIC CARCINOMA
     Dosage: 10MG/KG
     Dates: start: 20050310, end: 20050425

REACTIONS (3)
  - BLOOD BILIRUBIN INCREASED [None]
  - SEPSIS [None]
  - WHITE BLOOD CELL COUNT INCREASED [None]
